FAERS Safety Report 11808191 (Version 1)
Quarter: 2015Q4

REPORT INFORMATION
  Report Type: Spontaneous
  Country: US (occurrence: US)
  Receive Date: 20151207
  Receipt Date: 20151207
  Transmission Date: 20160305
  Serious: No
  Sender: FDA-Public Use
  Company Number: US-NOVELLABS-2014-US-000004

PATIENT
  Age: 77 Year
  Sex: Female
  Weight: 79.83 kg

DRUGS (4)
  1. ANTIBIOTICS WHEN SHE GETS UTI [Concomitant]
  2. POLYETHYLENE GLYCOL 3350. [Suspect]
     Active Substance: POLYETHYLENE GLYCOL 3350
     Dosage: 17GM, ONCE A DAY,
     Route: 048
     Dates: start: 201405, end: 20141106
  3. THYROID [Concomitant]
     Active Substance: LEVOTHYROXINE\LIOTHYRONINE
  4. BLOOD PRESSURE [Concomitant]

REACTIONS (2)
  - Dyspepsia [Unknown]
  - Abdominal distension [Unknown]

NARRATIVE: CASE EVENT DATE: 201405
